FAERS Safety Report 8821744 (Version 1)
Quarter: 2012Q4

REPORT INFORMATION
  Report Type: 
  Country: US (occurrence: US)
  Receive Date: 20121002
  Receipt Date: 20121002
  Transmission Date: 20130627
  Serious: Yes (Other)
  Sender: FDA-Public Use
  Company Number: US-TEVA-362115USA

PATIENT
  Sex: Female

DRUGS (2)
  1. PROAIR HFA [Suspect]
  2. SINGULAIR [Concomitant]
     Dosage: 10 Milligram Daily;
     Route: 048

REACTIONS (1)
  - Pharyngeal oedema [Recovered/Resolved]
